FAERS Safety Report 8762686 (Version 1)
Quarter: 2012Q4

REPORT INFORMATION
  Report Type: Report from Study
  Country: US (occurrence: US)
  Receive Date: 20120830
  Receipt Date: 20120830
  Transmission Date: 20130627
  Serious: Yes (Other)
  Sender: FDA-Public Use
  Company Number: US-ABBOTT-12P-163-0971152-00

PATIENT
  Sex: Female
  Weight: 75.36 kg

DRUGS (4)
  1. HUMIRA 40 MG/0.8 ML PEN [Suspect]
     Indication: PSORIASIS
     Route: 058
     Dates: start: 2009, end: 201206
  2. HUMIRA 40 MG/0.8 ML PEN [Suspect]
     Route: 058
     Dates: start: 20120724
  3. ZOLOFT [Concomitant]
     Indication: DEPRESSION
  4. LUNESTA [Concomitant]
     Indication: POOR QUALITY SLEEP
     Dosage: At bedtime

REACTIONS (1)
  - Bunion [Recovered/Resolved]
